FAERS Safety Report 7972528-9 (Version None)
Quarter: 2011Q4

REPORT INFORMATION
  Report Type: 
  Country: None (occurrence: None)
  Receive Date: 20111209
  Receipt Date: 20111129
  Transmission Date: 20120403
  Serious: Yes (Hospitalization)
  Sender: FDA-Public Use
  Company Number: TPA2011A06989

PATIENT
  Age: 72 Year
  Sex: Male
  Weight: 87.0906 kg

DRUGS (1)
  1. ACTOS [Suspect]
     Indication: DIABETES MELLITUS
     Dosage: 15 MG, 1IN 1 D, PER ORAL
     Route: 048
     Dates: start: 20080429, end: 20081110

REACTIONS (1)
  - RENAL CELL CARCINOMA [None]
